FAERS Safety Report 7398308-3 (Version None)
Quarter: 2011Q2

REPORT INFORMATION
  Report Type: 
  Country: None (occurrence: None)
  Receive Date: 20110406
  Receipt Date: 20110401
  Transmission Date: 20111010
  Serious: No
  Sender: FDA-Public Use
  Company Number: US-BAYER-2011-028908

PATIENT
  Sex: Female

DRUGS (1)
  1. ADALAT CC [Suspect]

REACTIONS (1)
  - ADVERSE REACTION [None]
